FAERS Safety Report 11197803 (Version 2)
Quarter: 2015Q2

REPORT INFORMATION
  Report Type: Spontaneous
  Country: US (occurrence: US)
  Receive Date: 20150617
  Receipt Date: 20150617
  Transmission Date: 20150821
  Serious: No
  Sender: FDA-Public Use
  Company Number: US-TOLMAR INC.-1040017

PATIENT
  Age: 58 Year
  Sex: Female
  Weight: 61.36 kg

DRUGS (1)
  1. MOMETASONE FUROATE. [Suspect]
     Active Substance: MOMETASONE FUROATE
     Indication: ECZEMA
     Route: 061
     Dates: start: 2014

REACTIONS (2)
  - Product physical consistency issue [None]
  - Infection [Not Recovered/Not Resolved]

NARRATIVE: CASE EVENT DATE: 201411
